FAERS Safety Report 12570492 (Version 1)
Quarter: 2016Q3

REPORT INFORMATION
  Report Type: Spontaneous
  Country: CN (occurrence: CN)
  Receive Date: 20160719
  Receipt Date: 20160719
  Transmission Date: 20161109
  Serious: Yes (Hospitalization, Other)
  Sender: FDA-Public Use
  Company Number: CN-MEDA-2016070028

PATIENT
  Age: 56 Year
  Sex: Female

DRUGS (3)
  1. NIFEDIPINE. [Concomitant]
     Active Substance: NIFEDIPINE
     Indication: HYPERTENSION
  2. MESALAZINE [Suspect]
     Active Substance: MESALAMINE
     Indication: COLITIS ULCERATIVE
     Dates: start: 201505, end: 201507
  3. MESALAZINE [Suspect]
     Active Substance: MESALAMINE
     Indication: PROCTITIS
     Dates: start: 201505, end: 201507

REACTIONS (3)
  - Eosinophilic pneumonia [Recovered/Resolved]
  - Prescription drug used without a prescription [Recovered/Resolved]
  - Bone marrow infiltration [Recovered/Resolved]

NARRATIVE: CASE EVENT DATE: 2015
